FAERS Safety Report 12378869 (Version 1)
Quarter: 2016Q2

REPORT INFORMATION
  Report Type: Report from Study
  Country: JP (occurrence: JP)
  Receive Date: 20160517
  Receipt Date: 20160517
  Transmission Date: 20160815
  Serious: Yes (Hospitalization)
  Sender: FDA-Public Use
  Company Number: JP-ASTRAZENECA-2016SE51596

PATIENT
  Age: 59 Year
  Sex: Female
  Weight: 71 kg

DRUGS (5)
  1. ZETIA [Concomitant]
     Active Substance: EZETIMIBE
     Route: 048
     Dates: end: 20160302
  2. FORXIGA [Suspect]
     Active Substance: DAPAGLIFLOZIN
     Indication: TYPE 2 DIABETES MELLITUS
     Route: 048
     Dates: start: 20151031, end: 20160302
  3. NEXIUM CAPSULES 20MG [Concomitant]
     Indication: PROPHYLAXIS
     Route: 048
     Dates: end: 20160302
  4. TRAZENTA [Concomitant]
     Active Substance: LINAGLIPTIN
     Indication: TYPE 2 DIABETES MELLITUS
     Route: 048
     Dates: end: 20160302
  5. URSO [Concomitant]
     Active Substance: URSODIOL
     Route: 048
     Dates: end: 20160302

REACTIONS (1)
  - Large intestinal obstruction [Unknown]

NARRATIVE: CASE EVENT DATE: 20160302
